FAERS Safety Report 5420122-6 (Version None)
Quarter: 2007Q3

REPORT INFORMATION
  Report Type: 
  Country: None (occurrence: None)
  Receive Date: 20070820
  Receipt Date: 20070809
  Transmission Date: 20080115
  Serious: Yes (Other)
  Sender: FDA-Public Use
  Company Number: AR-PFIZER INC-2007067351

PATIENT
  Age: 65 Year
  Sex: Female

DRUGS (4)
  1. SUTENT [Suspect]
     Indication: RENAL CANCER METASTATIC
     Dosage: DAILY DOSE:25MG-FREQ:4 WEEKS ON/2 WEEKS OFF
     Route: 048
  2. CLONAZEPAM [Concomitant]
     Route: 048
  3. METFORMIN HCL [Concomitant]
     Route: 048
  4. TRAMADOL HCL [Concomitant]
     Route: 048

REACTIONS (2)
  - DIARRHOEA [None]
  - FEMUR FRACTURE [None]
